FAERS Safety Report 6470784-X (Version None)
Quarter: 2009Q4

REPORT INFORMATION
  Report Type: 
  Country: None (occurrence: None)
  Receive Date: 20091203
  Receipt Date: 20091125
  Transmission Date: 20100525
  Serious: Yes (Other)
  Sender: FDA-Public Use
  Company Number: B0610434A

PATIENT
  Age: 4 Year
  Sex: Male

DRUGS (1)
  1. AUGMENTIN [Suspect]
     Indication: STAPHYLOCOCCAL SCALDED SKIN SYNDROME
     Route: 048
     Dates: start: 20090604, end: 20090604

REACTIONS (3)
  - DYSPNOEA [None]
  - URTICARIA [None]
  - VOMITING [None]
